FAERS Safety Report 20644856 (Version 8)
Quarter: 2023Q4

REPORT INFORMATION
  Report Type: Report from Study
  Country: KR (occurrence: None)
  Receive Date: 20220328
  Receipt Date: 20231101
  Transmission Date: 20240110
  Serious: Yes (Death, Hospitalization)
  Sender: FDA-Public Use
  Company Number: KR-ROCHE-2988892

PATIENT
  Age: 80 Year
  Sex: Male
  Weight: 56.3 kg

DRUGS (56)
  1. PLACEBO [Suspect]
     Active Substance: UNSPECIFIED INGREDIENT
     Indication: Oesophageal squamous cell carcinoma
     Dosage: MOST RECENT DOSE OF STUDY DRUG PRIOR TO SAE WAS ON 20/DEC/2021.
     Route: 042
     Dates: start: 20211129
  2. ATEZOLIZUMAB [Suspect]
     Active Substance: ATEZOLIZUMAB
     Indication: Oesophageal squamous cell carcinoma
     Dosage: MOST RECENT DOSE OF STUDY DRUG PRIOR TO SAE WAS ON 20/DEC/2021.
     Route: 041
     Dates: start: 20211129
  3. MONTERIZINE [Concomitant]
     Indication: Asthma
     Dates: start: 2017, end: 20220221
  4. DOXOFYLLINE [Concomitant]
     Active Substance: DOXOFYLLINE
     Indication: Asthma
     Dates: start: 2017, end: 20220221
  5. ERDORAL [Concomitant]
     Indication: Asthma
     Dates: start: 2015, end: 20220221
  6. LAMINA-G [Concomitant]
     Indication: Abdominal pain upper
     Dates: start: 20211020, end: 20220221
  7. CODAEWON [Concomitant]
     Indication: Asthma
     Dates: start: 20211220, end: 20220221
  8. LIPITOR [Concomitant]
     Active Substance: ATORVASTATIN CALCIUM
     Indication: Angina pectoris
     Dates: start: 20200421, end: 20220221
  9. NICORANDIL [Concomitant]
     Active Substance: NICORANDIL
     Indication: Angina pectoris
     Dates: start: 20200421, end: 20220221
  10. NITROGLYCERIN [Concomitant]
     Active Substance: NITROGLYCERIN
     Indication: Angina pectoris
     Dates: start: 20200422
  11. MICARDIS [Concomitant]
     Active Substance: TELMISARTAN
     Indication: Hypertension
     Route: 048
     Dates: start: 20200427, end: 20211226
  12. MICARDIS [Concomitant]
     Active Substance: TELMISARTAN
     Dates: start: 20211227, end: 20211230
  13. PLAVIX [Concomitant]
     Active Substance: CLOPIDOGREL BISULFATE
     Indication: Angina pectoris
     Dates: start: 20210422, end: 20220221
  14. ALGIN N [Concomitant]
     Dates: start: 20211222, end: 20220221
  15. SINGULAIR [Concomitant]
     Active Substance: MONTELUKAST SODIUM
     Indication: Asthma
     Dates: start: 20211222, end: 20220221
  16. ERDOSTEINE [Concomitant]
     Active Substance: ERDOSTEINE
     Indication: Asthma
     Dates: start: 20211222, end: 20220107
  17. ESO DUO [Concomitant]
     Dates: start: 20211222, end: 20211226
  18. PACETA [Concomitant]
     Indication: Pyrexia
     Route: 042
     Dates: start: 20211222, end: 20211222
  19. SUSPEN ER [Concomitant]
     Indication: Headache
     Dates: start: 20211224, end: 20211226
  20. CARVEDILOL [Concomitant]
     Active Substance: CARVEDILOL
     Dates: start: 20211224, end: 20211224
  21. AROXOL [Concomitant]
     Indication: Asthma
     Dates: start: 20211224, end: 20220107
  22. BATROXOBIN [Concomitant]
     Active Substance: BATROXOBIN
     Dates: start: 20211224, end: 20211228
  23. NORVASC [Concomitant]
     Active Substance: AMLODIPINE BESYLATE
     Route: 048
     Dates: start: 20211225, end: 20211226
  24. NORVASC [Concomitant]
     Active Substance: AMLODIPINE BESYLATE
     Dates: start: 20211229, end: 20220101
  25. NORVASC [Concomitant]
     Active Substance: AMLODIPINE BESYLATE
     Dates: start: 20220102
  26. HYDRALAZINE [Concomitant]
     Active Substance: HYDRALAZINE HYDROCHLORIDE
     Indication: Hypertension
     Route: 042
     Dates: start: 20211225, end: 20211226
  27. HYDRALAZINE [Concomitant]
     Active Substance: HYDRALAZINE HYDROCHLORIDE
     Dates: start: 20211229, end: 20211229
  28. KCL [Concomitant]
     Active Substance: POTASSIUM CHLORIDE
     Dates: start: 20211225, end: 20211231
  29. FURTMAN [Concomitant]
     Dates: start: 20211225, end: 20220106
  30. VITAMINS [Concomitant]
     Active Substance: VITAMINS
     Dates: start: 20211225, end: 20220106
  31. TOUJEO [Concomitant]
     Active Substance: INSULIN GLARGINE
     Dosage: 15 U
     Route: 058
     Dates: start: 20211225, end: 20220110
  32. APIDRA SOLOSTAR [Concomitant]
     Active Substance: INSULIN GLULISINE
     Dosage: 9 U
     Route: 058
     Dates: start: 20211226, end: 20220110
  33. TRANSAMIN [Concomitant]
     Active Substance: TRANEXAMIC ACID
     Dates: start: 20211226, end: 20211226
  34. NEXIUM [Concomitant]
     Active Substance: ESOMEPRAZOLE MAGNESIUM
     Dates: start: 20211226, end: 20220104
  35. LASIX [Concomitant]
     Active Substance: FUROSEMIDE
     Dates: start: 20211227, end: 20211230
  36. LASIX [Concomitant]
     Active Substance: FUROSEMIDE
     Dates: start: 20211230, end: 20211230
  37. HEXAMEDIN [Concomitant]
     Dates: start: 20211228, end: 20220117
  38. TULOBUTEROL [Concomitant]
     Active Substance: TULOBUTEROL
     Dates: start: 20211228, end: 20220107
  39. ZOLPIDEM TARTRATE [Concomitant]
     Active Substance: ZOLPIDEM TARTRATE
     Indication: Delirium
     Dates: start: 20211228, end: 20220117
  40. TRANEXAMIC ACID [Concomitant]
     Active Substance: TRANEXAMIC ACID
     Dates: start: 20211228, end: 20220102
  41. TANTUM [Concomitant]
     Active Substance: BENZYDAMINE HYDROCHLORIDE
     Dates: start: 20211229
  42. HALOPERIDOL [Concomitant]
     Active Substance: HALOPERIDOL
     Indication: Delirium
     Dates: start: 20211229, end: 20220101
  43. HALOPERIDOL [Concomitant]
     Active Substance: HALOPERIDOL
     Dates: start: 20220103, end: 20220104
  44. PENIRAMIN [Concomitant]
     Dates: start: 20211228, end: 20211228
  45. PENIRAMIN [Concomitant]
     Dates: start: 20211230, end: 20211230
  46. KANARB [Concomitant]
     Indication: Hypertension
     Route: 048
     Dates: start: 20211231, end: 20220101
  47. KANARB [Concomitant]
     Dates: start: 20220102
  48. SODIUM BICARBONATE [Concomitant]
     Active Substance: SODIUM BICARBONATE
     Dates: start: 20211231, end: 20220110
  49. PERIDEX OINTMENT [Concomitant]
     Indication: Erythema multiforme
     Route: 058
     Dates: start: 20220107, end: 20220221
  50. BEAROBAN [Concomitant]
     Dates: start: 20220110, end: 20220221
  51. GLUCOPHAGE [Concomitant]
     Active Substance: METFORMIN HYDROCHLORIDE
     Dates: start: 20220110
  52. PANTOPRAZOLE SODIUM [Concomitant]
     Active Substance: PANTOPRAZOLE SODIUM
     Dates: start: 20220105
  53. HUMAN RED BLOOD CELL [Concomitant]
     Active Substance: HUMAN RED BLOOD CELL
     Dates: start: 20211228, end: 20211228
  54. CRYOPRECIPITATED ANTIHEMOPHILIC FACTOR (HUMAN) [Concomitant]
     Active Substance: CRYOPRECIPITATED ANTIHEMOPHILIC FACTOR (HUMAN)
     Indication: Blood fibrinogen decreased
     Dates: start: 20211230, end: 20211230
  55. HYALU MINI [Concomitant]
     Dates: start: 20220117
  56. ATIVAN [Concomitant]
     Active Substance: LORAZEPAM
     Indication: Delirium
     Dates: start: 20211229, end: 20220104

REACTIONS (2)
  - Interstitial lung disease [Fatal]
  - Asthenia [Recovered/Resolved]

NARRATIVE: CASE EVENT DATE: 20211222
